FAERS Safety Report 11621513 (Version 5)
Quarter: 2016Q2

REPORT INFORMATION
  Report Type: Report from Study
  Country: CA (occurrence: CA)
  Receive Date: 20151013
  Receipt Date: 20160505
  Transmission Date: 20160815
  Serious: Yes (Other)
  Sender: FDA-Public Use
  Company Number: CA-ROCHE-1559428

PATIENT
  Age: 62 Year
  Sex: Female
  Weight: 56.75 kg

DRUGS (14)
  1. DIPHENHYDRAMINE HCL [Concomitant]
     Active Substance: DIPHENHYDRAMINE HYDROCHLORIDE
     Indication: PREMEDICATION
     Route: 048
     Dates: start: 20150331
  2. ACETAMINOPHEN. [Concomitant]
     Active Substance: ACETAMINOPHEN
     Indication: PREMEDICATION
     Route: 048
     Dates: start: 20150331
  3. AZITHROMYCIN ANHYDROUS. [Concomitant]
     Active Substance: AZITHROMYCIN ANHYDROUS
     Indication: PROPHYLAXIS
  4. VENTOLIN [Concomitant]
     Active Substance: ALBUTEROL SULFATE
  5. PENTAMIDINE [Concomitant]
     Active Substance: PENTAMIDINE
  6. METHYLPREDNISOLONE. [Concomitant]
     Active Substance: METHYLPREDNISOLONE
     Indication: PREMEDICATION
     Route: 042
     Dates: start: 20150331
  7. CYCLOPHOSPHAMIDE. [Concomitant]
     Active Substance: CYCLOPHOSPHAMIDE
  8. RITUXAN [Suspect]
     Active Substance: RITUXIMAB
     Indication: MONONEUROPATHY MULTIPLEX
     Route: 042
     Dates: start: 20150331
  9. ADVAIR HFA [Concomitant]
     Active Substance: FLUTICASONE PROPIONATE\SALMETEROL XINAFOATE
  10. AMITRIPTYLINE [Concomitant]
     Active Substance: AMITRIPTYLINE
  11. IMMUNOGLOBULIN [Concomitant]
     Active Substance: HUMAN IMMUNOGLOBULIN G
     Route: 042
  12. SPIRIVA [Concomitant]
     Active Substance: TIOTROPIUM BROMIDE MONOHYDRATE
  13. PREDNISONE. [Concomitant]
     Active Substance: PREDNISONE
  14. LYRICA [Concomitant]
     Active Substance: PREGABALIN

REACTIONS (9)
  - Foot deformity [Unknown]
  - Foot fracture [Unknown]
  - Fatigue [Unknown]
  - Off label use [Unknown]
  - Weight increased [Unknown]
  - Blood pressure increased [Unknown]
  - Fall [Unknown]
  - Urinary tract infection [Unknown]
  - Increased appetite [Unknown]

NARRATIVE: CASE EVENT DATE: 20150331
